FAERS Safety Report 23206264 (Version 1)
Quarter: 2023Q4

REPORT INFORMATION
  Report Type: Spontaneous
  Country: GB (occurrence: GB)
  Receive Date: 20231120
  Receipt Date: 20231120
  Transmission Date: 20240110
  Serious: Yes (Hospitalization)
  Sender: FDA-Public Use
  Company Number: None

PATIENT
  Age: 76 Year
  Sex: Male

DRUGS (22)
  1. COTRIMOXAZOLE [Suspect]
     Active Substance: SULFAMETHOXAZOLE\TRIMETHOPRIM
     Indication: Product used for unknown indication
     Dosage: 960 MILLIGRAM, BID
     Route: 065
  2. TIGECYCLINE [Suspect]
     Active Substance: TIGECYCLINE
     Indication: Product used for unknown indication
     Dosage: 50 MILLIGRAM, BID, INFUSION
     Route: 042
  3. CREON [Concomitant]
     Active Substance: PANCRELIPASE AMYLASE\PANCRELIPASE LIPASE\PANCRELIPASE PROTEASE
     Dosage: 2 DOSAGE FORM, WITH MEALS
     Route: 065
  4. LANTUS [Concomitant]
     Active Substance: INSULIN GLARGINE
     Dosage: 1000 INTERNATIONAL UNIT, QD, IN 1ML - 6 UNITS - MORNING
     Route: 065
  5. CALCIUM CARBONATE\CHOLECALCIFEROL [Concomitant]
     Active Substance: CALCIUM CARBONATE\CHOLECALCIFEROL
     Dosage: 1 DOSAGE FORM, BID
     Route: 065
  6. CLARITHROMYCIN [Concomitant]
     Active Substance: CLARITHROMYCIN
     Dosage: 500 MILLIGRAM, BID
     Route: 065
  7. LANSOPRAZOLE [Concomitant]
     Active Substance: LANSOPRAZOLE
     Dosage: 30 MILLIGRAM, QD, ONE MORNING
     Route: 065
  8. CYCLIZINE [Concomitant]
     Active Substance: CYCLIZINE
     Dosage: 50 MILLIGRAM, 3X
     Route: 065
  9. ONDANSETRON [Concomitant]
     Active Substance: ONDANSETRON
     Dosage: 4 MILLIGRAM, BID
     Route: 065
  10. BUMETANIDE [Concomitant]
     Active Substance: BUMETANIDE
     Dosage: 1 MILLIGRAM, ONE IN THE MORNING
     Route: 065
  11. APIXABAN [Concomitant]
     Active Substance: APIXABAN
     Dosage: 5 MILLIGRAM, BID
     Route: 065
  12. BISOPROLOL [Concomitant]
     Active Substance: BISOPROLOL\BISOPROLOL FUMARATE
     Dosage: 2.5 MILLIGRAM, QD, ONE MORNING
     Route: 065
  13. RAMIPRIL [Concomitant]
     Active Substance: RAMIPRIL
     Dosage: 3.75 MILLIGRAM, QD, ONE MORNING
     Route: 065
  14. MORPHINE [Concomitant]
     Active Substance: MORPHINE
     Dosage: UNK
     Route: 065
  15. FOLIC ACID [Concomitant]
     Active Substance: FOLIC ACID
     Dosage: 5 MILLIGRAM, QD, MORNING
     Route: 065
  16. IMIPENEM [Concomitant]
     Active Substance: IMIPENEM
     Dosage: 5000 MILLIGRAM
     Route: 065
  17. FELODIPINE [Concomitant]
     Active Substance: FELODIPINE
     Dosage: UNK
     Route: 065
  18. ALENDRONIC ACID [Concomitant]
     Active Substance: ALENDRONIC ACID
     Dosage: 70 MILLIGRAM, QD
     Route: 065
  19. SODIUM CHLORIDE [Concomitant]
     Active Substance: SODIUM CHLORIDE
     Dosage: 10 MILLILITER, INFUSION FLUSH PRE AND POST
     Route: 042
  20. SODIUM CHLORIDE [Concomitant]
     Active Substance: SODIUM CHLORIDE
     Dosage: 1 DOSAGE FORM
     Route: 042
  21. CILASTATIN [Concomitant]
     Active Substance: CILASTATIN
     Dosage: 500 MILLIGRAM, 750MG MORNING AND TEATIME
     Route: 065
  22. DIPIPANONE HYDROCHLORIDE [Suspect]
     Active Substance: DIPIPANONE HYDROCHLORIDE
     Dosage: UNK
     Route: 065

REACTIONS (2)
  - Thrombocytopenia [Recovered/Resolved]
  - Blood fibrinogen decreased [Recovered/Resolved]
